FAERS Safety Report 8876740 (Version 3)
Quarter: 2013Q1

REPORT INFORMATION
  Report Type: Spontaneous
  Country: US (occurrence: US)
  Receive Date: 20121029
  Receipt Date: 20130123
  Transmission Date: 20140127
  Serious: No
  Sender: FDA-Public Use
  Company Number: US-PFIZER INC-2012267145

PATIENT
  Age: 86 Year
  Sex: Female
  Weight: 46.3 kg

DRUGS (5)
  1. CELEBREX [Suspect]
     Dosage: UNK
  2. XALATAN [Suspect]
     Indication: GLAUCOMA
     Dosage: 1X/DAY
     Route: 047
  3. LATANOPROST [Suspect]
     Indication: GLAUCOMA
     Dosage: ONCE A DAY
     Route: 047
     Dates: start: 201210, end: 2012
  4. ZOCOR [Suspect]
     Indication: BLOOD CHOLESTEROL INCREASED
     Dosage: 40 MG
  5. WARFARIN [Concomitant]
     Indication: THROMBOSIS
     Dosage: UNK

REACTIONS (11)
  - Drug ineffective [Unknown]
  - Fatigue [Unknown]
  - Dyspnoea [Unknown]
  - Intraocular pressure increased [Unknown]
  - Reading disorder [Not Recovered/Not Resolved]
  - Eye disorder [Not Recovered/Not Resolved]
  - Visual impairment [Not Recovered/Not Resolved]
  - Eye discharge [Not Recovered/Not Resolved]
  - Eyelid disorder [Unknown]
  - Eye irritation [Unknown]
  - Cardiac discomfort [Unknown]
